FAERS Safety Report 6128819-X (Version None)
Quarter: 2009Q1

REPORT INFORMATION
  Report Type: 
  Country: None (occurrence: None)
  Receive Date: 20090320
  Receipt Date: 20090309
  Transmission Date: 20090719
  Serious: Yes (Other)
  Sender: FDA-Public Use
  Company Number: 2009-00979

PATIENT
  Sex: Female

DRUGS (1)
  1. VELCADE [Suspect]
     Indication: MULTIPLE MYELOMA
     Dates: start: 20070201

REACTIONS (5)
  - ABASIA [None]
  - ASTHENIA [None]
  - DIARRHOEA [None]
  - NEUROPATHY PERIPHERAL [None]
  - VOMITING [None]
